FAERS Safety Report 9242883 (Version 1)
Quarter: 2013Q2

REPORT INFORMATION
  Report Type: Spontaneous
  Country: FR (occurrence: FR)
  Receive Date: 20130419
  Receipt Date: 20130419
  Transmission Date: 20140414
  Serious: Yes (Life-Threatening)
  Sender: FDA-Public Use
  Company Number: FR-BAXTER-2013BAX013991

PATIENT
  Age: 38 Year
  Sex: Female

DRUGS (15)
  1. SUPRANE, LIQUIDE POUR INHALATION PAR VAPEUR [Suspect]
     Indication: ANAESTHESIA
     Route: 055
     Dates: start: 20111123, end: 20111123
  2. SUPRANE, LIQUIDE POUR INHALATION PAR VAPEUR [Suspect]
     Dates: start: 20111123, end: 20111123
  3. SUPRANE, LIQUIDE POUR INHALATION PAR VAPEUR [Suspect]
     Dates: start: 20111123, end: 20111123
  4. ATROPINE LAVOISIER [Suspect]
     Indication: PRODUCT USED FOR UNKNOWN INDICATION
     Route: 042
     Dates: start: 20111123, end: 20111123
  5. NAROPEINE [Suspect]
     Indication: ANAESTHESIA
     Dosage: 1 UNIT
     Route: 042
     Dates: start: 20111123, end: 20111123
  6. DROLEPTAN [Suspect]
     Indication: PROPHYLAXIS
     Route: 042
     Dates: start: 20111123, end: 20111123
  7. PHLOROGLUCINOL [Suspect]
     Indication: GASTROINTESTINAL DISORDER
     Route: 042
     Dates: start: 20111123, end: 20111123
  8. PROPOFOL LIPURO [Suspect]
     Indication: ANAESTHESIA
     Route: 042
     Dates: start: 20111123, end: 20111123
  9. SUFENTANIL [Suspect]
     Indication: ANAESTHESIA
     Dosage: 15
     Route: 042
     Dates: start: 20111123, end: 20111123
  10. NIMBEX [Suspect]
     Indication: ANAESTHESIA
     Route: 042
     Dates: start: 20111123, end: 20111123
  11. ONDANSETRON [Suspect]
     Indication: PROPHYLAXIS
     Dosage: 1 UNIT
     Route: 042
     Dates: start: 20111123, end: 20111123
  12. NEOSTIGMINE [Suspect]
     Indication: PRODUCT USED FOR UNKNOWN INDICATION
     Route: 042
     Dates: start: 20111123, end: 20111123
  13. CEFAZOLIN PANPHARMA [Suspect]
     Indication: PROPHYLAXIS
     Dosage: 1 UNIT
     Route: 042
     Dates: start: 20111123, end: 20111123
  14. EFFERALGAN /00020001/ [Suspect]
     Indication: PAIN
     Dosage: 1 UNIT
     Route: 042
     Dates: start: 20111123, end: 20111123
  15. PROFENID [Suspect]
     Indication: PAIN
     Dosage: 1 UNIT
     Route: 042
     Dates: start: 20111123, end: 20111123

REACTIONS (1)
  - Circulatory collapse [Recovered/Resolved]
